FAERS Safety Report 4422911-3 (Version None)
Quarter: 2004Q3

REPORT INFORMATION
  Report Type: 
  Country: None (occurrence: None)
  Receive Date: 20040804
  Receipt Date: 20040722
  Transmission Date: 20050211
  Serious: Yes (Hospitalization)
  Sender: FDA-Public Use
  Company Number: T01-USA-01226-01

PATIENT
  Age: 1 Day
  Sex: Female
  Weight: 0.775 kg

DRUGS (3)
  1. INFASURF PRESERVATIVE FREE [Suspect]
     Indication: NEONATAL RESPIRATORY DISTRESS SYNDROME
  2. SURVANTA [Suspect]
     Indication: NEONATAL RESPIRATORY DISTRESS SYNDROME
     Dates: start: 20010617, end: 20010620
  3. INDOCIN [Concomitant]

REACTIONS (8)
  - ANAEMIA NEONATAL [None]
  - ELECTROLYTE IMBALANCE [None]
  - INTRAVENTRICULAR HAEMORRHAGE NEONATAL [None]
  - MALAISE [None]
  - NEONATAL HYPOTENSION [None]
  - PATENT DUCTUS ARTERIOSUS [None]
  - POST PROCEDURAL HAEMORRHAGE [None]
  - PULMONARY HAEMORRHAGE [None]
